FAERS Safety Report 4944597-1 (Version None)
Quarter: 2006Q1

REPORT INFORMATION
  Report Type: 
  Country: None (occurrence: None)
  Receive Date: 20060315
  Receipt Date: 20060208
  Transmission Date: 20060701
  Serious: Yes (Other)
  Sender: FDA-Public Use
  Company Number: JP-ROCHE-436302

PATIENT
  Age: 12 Year
  Sex: Male
  Weight: 48 kg

DRUGS (8)
  1. TAMIFLU [Suspect]
     Indication: INFLUENZA
     Route: 048
     Dates: start: 20060203, end: 20060203
  2. TAMIFLU [Suspect]
     Route: 048
     Dates: start: 20060204, end: 20060205
  3. TAMIFLU [Suspect]
     Route: 048
     Dates: start: 20060206, end: 20060206
  4. BUFFERIN [Concomitant]
     Route: 048
     Dates: start: 20050715
  5. SELBEX [Concomitant]
     Route: 048
     Dates: start: 20050715
  6. ASVERIN [Concomitant]
     Route: 048
     Dates: start: 20060204
  7. PERIACTIN [Concomitant]
     Route: 048
     Dates: start: 20060204
  8. MUCODYNE [Concomitant]
     Route: 048
     Dates: start: 20060204

REACTIONS (2)
  - NEUTROPHIL COUNT DECREASED [None]
  - WHITE BLOOD CELL COUNT DECREASED [None]
